FAERS Safety Report 22010568 (Version 1)
Quarter: 2023Q1

REPORT INFORMATION
  Report Type: Spontaneous
  Country: US (occurrence: US)
  Receive Date: 20230220
  Receipt Date: 20230220
  Transmission Date: 20230418
  Serious: No
  Sender: FDA-Public Use
  Company Number: US-PERRIGO-22US006732

PATIENT
  Age: 63 Year
  Sex: Male
  Weight: 83.9 kg

DRUGS (2)
  1. NAPROXEN SODIUM [Suspect]
     Active Substance: NAPROXEN SODIUM
     Indication: Arthralgia
     Dosage: 220 MG, Q6 HRS
     Route: 048
     Dates: start: 20220406, end: 20220427
  2. NAPROXEN SODIUM [Suspect]
     Active Substance: NAPROXEN SODIUM
     Dosage: 220 MG, Q6 HRS
     Route: 048
     Dates: start: 20220501, end: 20220505

REACTIONS (6)
  - Taste disorder [Recovering/Resolving]
  - Parosmia [Recovering/Resolving]
  - Urine odour abnormal [Recovering/Resolving]
  - Abnormal faeces [Recovering/Resolving]
  - Inappropriate schedule of product administration [Recovered/Resolved]
  - Incorrect product administration duration [Recovered/Resolved]

NARRATIVE: CASE EVENT DATE: 20220406
